FAERS Safety Report 17115093 (Version 1)
Quarter: 2019Q4

REPORT INFORMATION
  Report Type: Spontaneous
  Country: US (occurrence: US)
  Receive Date: 20191205
  Receipt Date: 20191205
  Transmission Date: 20200122
  Serious: No
  Sender: FDA-Public Use
  Company Number: US-GW PHARMA-201910USGW3746

PATIENT

DRUGS (13)
  1. EPIDIOLEX [Interacting]
     Active Substance: CANNABIDIOL
     Dosage: 10MG/KG/DAY
     Route: 048
     Dates: start: 2019, end: 20190708
  2. EVEROLIMUS. [Interacting]
     Active Substance: EVEROLIMUS
     Dosage: 5MG, (MTOR INHIBITOR)
     Route: 065
  3. ONFI [Interacting]
     Active Substance: CLOBAZAM
     Dosage: 30 MILLIGRAM, QD (10 MG QAM AND 20 MG PM)
     Route: 065
  4. TOPIRAMATE. [Concomitant]
     Active Substance: TOPIRAMATE
     Indication: PRODUCT USED FOR UNKNOWN INDICATION
     Dosage: UNK
     Route: 065
  5. LEXAPRO [Concomitant]
     Active Substance: ESCITALOPRAM OXALATE
     Indication: PRODUCT USED FOR UNKNOWN INDICATION
     Dosage: UNK
     Route: 065
  6. EPIDIOLEX [Suspect]
     Active Substance: CANNABIDIOL
     Indication: LENNOX-GASTAUT SYNDROME
     Dosage: 5 MG/KG/DAY
     Route: 048
     Dates: start: 20190604, end: 2019
  7. VALPROIC ACID. [Interacting]
     Active Substance: VALPROIC ACID
     Indication: PRODUCT USED FOR UNKNOWN INDICATION
     Dosage: 500 MILLIGRAM, BID
     Route: 065
  8. ONFI [Interacting]
     Active Substance: CLOBAZAM
     Indication: PRODUCT USED FOR UNKNOWN INDICATION
     Dosage: 20 MILLIGRAM, BID
     Route: 065
  9. EPIDIOLEX [Interacting]
     Active Substance: CANNABIDIOL
     Dosage: 15 MG/KG/DAY
     Route: 048
     Dates: start: 20190709, end: 2019
  10. EPIDIOLEX [Interacting]
     Active Substance: CANNABIDIOL
     Dosage: RETURNED TO BASELINE AED DOSE, UNK
     Route: 048
     Dates: start: 2019, end: 20190810
  11. EVEROLIMUS. [Interacting]
     Active Substance: EVEROLIMUS
     Indication: PRODUCT USED FOR UNKNOWN INDICATION
     Dosage: 10 MG MAINTANENCE FOR 3 YEARS (MTOR INHIBITOR)
     Route: 065
  12. VALPROIC ACID. [Interacting]
     Active Substance: VALPROIC ACID
     Dosage: 750 MILLIGRAM, QD (250 MG-500MG)
     Route: 065
  13. OXCARBAZEPINE. [Concomitant]
     Active Substance: OXCARBAZEPINE
     Indication: PRODUCT USED FOR UNKNOWN INDICATION
     Dosage: UNK
     Route: 065

REACTIONS (3)
  - Ataxia [Recovered/Resolved]
  - Drug interaction [Unknown]
  - Dizziness [Recovered/Resolved]

NARRATIVE: CASE EVENT DATE: 2019
